FAERS Safety Report 4788904-1 (Version None)
Quarter: 2005Q4

REPORT INFORMATION
  Report Type: 
  Country: None (occurrence: None)
  Receive Date: 20051004
  Receipt Date: 20050920
  Transmission Date: 20060501
  Serious: Yes (Death, Other)
  Sender: FDA-Public Use
  Company Number: EWC050845501

PATIENT
  Age: 70 Year
  Sex: Female

DRUGS (7)
  1. HUMALOG MIX 75/25 [Suspect]
     Indication: DIABETES MELLITUS
     Dosage: 20 U DAY
     Dates: start: 20050821, end: 20050823
  2. HUMULIN R [Suspect]
     Indication: DIABETES MELLITUS NON-INSULIN-DEPENDENT
     Dosage: 12 U DAY
     Dates: start: 20050822
  3. ORNIDAZOLE [Concomitant]
  4. PANTOPRAZOLE [Concomitant]
  5. CORPRILOR (ENALAPRIL MALEATE) [Concomitant]
  6. LACTOBACILLS ACIDOPHILUS [Concomitant]
  7. CREON [Concomitant]

REACTIONS (7)
  - CARDIAC ARREST [None]
  - GLUCOSE URINE PRESENT [None]
  - HAEMOPTYSIS [None]
  - HYPERGLYCAEMIA [None]
  - MYOCARDIAL INFARCTION [None]
  - PHARMACEUTICAL PRODUCT COMPLAINT [None]
  - RESTLESSNESS [None]
